FAERS Safety Report 9828257 (Version 2)
Quarter: 2014Q1

REPORT INFORMATION
  Report Type: Spontaneous
  Country: JP (occurrence: JP)
  Receive Date: 20140117
  Receipt Date: 20140131
  Transmission Date: 20141002
  Serious: Yes (Other)
  Sender: FDA-Public Use
  Company Number: JP-PFIZER INC-2014014413

PATIENT
  Age: 26 Year
  Sex: Female

DRUGS (1)
  1. HALCION [Suspect]
     Indication: INITIAL INSOMNIA
     Dosage: 1 TABLET (0.25 MG), AS NEEDED
     Route: 048
     Dates: start: 201305

REACTIONS (1)
  - Convulsion [Recovered/Resolved]
